FAERS Safety Report 17502418 (Version 2)
Quarter: 2020Q1

REPORT INFORMATION
  Report Type: Spontaneous
  Country: CA (occurrence: CA)
  Receive Date: 20200305
  Receipt Date: 20200310
  Transmission Date: 20200409
  Serious: Yes (Other)
  Sender: FDA-Public Use
  Company Number: CA-PFIZER INC-2020016268

PATIENT
  Age: 59 Year
  Sex: Female

DRUGS (1)
  1. XELJANZ [Suspect]
     Active Substance: TOFACITINIB CITRATE
     Indication: PSORIATIC ARTHROPATHY
     Dosage: 5 MG, 2X/DAY
     Route: 048
     Dates: start: 20200212

REACTIONS (14)
  - Hyperhidrosis [Unknown]
  - Somnolence [Unknown]
  - Abdominal distension [Unknown]
  - Nausea [Unknown]
  - Renal disorder [Unknown]
  - Swelling [Recovering/Resolving]
  - Tremor [Unknown]
  - Hepatic pain [Unknown]
  - Abdominal pain [Unknown]
  - Feeling abnormal [Unknown]
  - Fatigue [Unknown]
  - Renal pain [Unknown]
  - Dizziness [Unknown]
  - Abdominal distension [Unknown]

NARRATIVE: CASE EVENT DATE: 2020
